FAERS Safety Report 15302007 (Version 3)
Quarter: 2019Q1

REPORT INFORMATION
  Report Type: Spontaneous
  Country: US (occurrence: US)
  Receive Date: 20180821
  Receipt Date: 20190214
  Transmission Date: 20190417
  Serious: Yes (Death, Other)
  Sender: FDA-Public Use
  Company Number: US-TEVA-2018-US-946426

PATIENT
  Age: 64 Year
  Sex: Male

DRUGS (3)
  1. EMTRICITABINE [Suspect]
     Active Substance: EMTRICITABINE
     Indication: HIV INFECTION
     Route: 065
  2. TENOFOVIR DISOPROXIL [Suspect]
     Active Substance: TENOFOVIR DISOPROXIL
     Indication: HIV INFECTION
     Route: 065
  3. DOLUTEGRAVIR [Suspect]
     Active Substance: DOLUTEGRAVIR
     Indication: HIV INFECTION
     Route: 065

REACTIONS (5)
  - High-grade B-cell lymphoma [Fatal]
  - Hypercalcaemia [Fatal]
  - Immune reconstitution inflammatory syndrome [Fatal]
  - Unmasking of previously unidentified disease [Fatal]
  - Tumour lysis syndrome [Fatal]
